FAERS Safety Report 10732849 (Version 1)
Quarter: 2015Q1

REPORT INFORMATION
  Report Type: Spontaneous
  Country: HR (occurrence: HR)
  Receive Date: 20150123
  Receipt Date: 20150123
  Transmission Date: 20150721
  Serious: Yes (Hospitalization)
  Sender: FDA-Public Use
  Company Number: HR-BAXTER-2015BAX002748

PATIENT
  Age: 28 Year
  Sex: Male
  Weight: 89 kg

DRUGS (8)
  1. HOLOXAN 1G [Suspect]
     Active Substance: IFOSFAMIDE
     Indication: PRODUCT USED FOR UNKNOWN INDICATION
     Route: 042
     Dates: start: 20140807, end: 20140811
  2. UROMITEXAN 400 MG/4 ML OTOPINA ZA INJEKCIJU [Suspect]
     Active Substance: MESNA
     Indication: PRODUCT USED FOR UNKNOWN INDICATION
     Route: 042
     Dates: start: 20140807, end: 20140811
  3. UROMITEXAN 400 MG/4 ML OTOPINA ZA INJEKCIJU [Suspect]
     Active Substance: MESNA
     Route: 041
     Dates: start: 20141015, end: 20141020
  4. CISPLATIN PFIZER [Suspect]
     Active Substance: CISPLATIN
     Indication: PRODUCT USED FOR UNKNOWN INDICATION
     Route: 042
     Dates: start: 20140807, end: 20140811
  5. CISPLATIN PFIZER [Suspect]
     Active Substance: CISPLATIN
     Route: 041
     Dates: start: 20141015, end: 20141020
  6. ETOPOSIDE PFIZER [Suspect]
     Active Substance: ETOPOSIDE
     Route: 041
     Dates: start: 20141015, end: 20141020
  7. HOLOXAN 1G [Suspect]
     Active Substance: IFOSFAMIDE
     Route: 041
     Dates: start: 20141015, end: 20141020
  8. ETOPOSIDE PFIZER [Suspect]
     Active Substance: ETOPOSIDE
     Indication: PRODUCT USED FOR UNKNOWN INDICATION
     Route: 042
     Dates: start: 20140807, end: 20140811

REACTIONS (2)
  - Thrombocytopenia [Recovered/Resolved]
  - Neutropenia [Recovered/Resolved]

NARRATIVE: CASE EVENT DATE: 20140813
